FAERS Safety Report 8984400 (Version 3)
Quarter: 2013Q1

REPORT INFORMATION
  Report Type: Spontaneous
  Country: JP (occurrence: JP)
  Receive Date: 20121226
  Receipt Date: 20130226
  Transmission Date: 20140127
  Serious: Yes (Other)
  Sender: FDA-Public Use
  Company Number: JP-JNJFOC-20121208522

PATIENT
  Age: 41 None
  Sex: Female
  Weight: 67 kg

DRUGS (8)
  1. REMICADE [Suspect]
     Indication: PSORIASIS
     Dosage: 8TH DOSE
     Route: 042
     Dates: start: 20120926
  2. REMICADE [Suspect]
     Indication: PSORIASIS
     Route: 042
     Dates: start: 20111025
  3. ALLEGRA [Concomitant]
     Indication: PSORIASIS
     Dosage: DOSE FOR ONE TREATMENT: 60MG
     Route: 048
     Dates: start: 20120123
  4. PARIET [Concomitant]
     Indication: GASTRITIS
     Dosage: DOSE FOR ONE TREATMENT: 10MG
     Route: 048
     Dates: start: 20120123
  5. DOMPERIDONE [Concomitant]
     Indication: NAUSEA
     Dosage: DOSE FOR ONE TREATMENT: 10MG
     Route: 048
     Dates: start: 20120123
  6. OXAROL [Concomitant]
     Indication: PSORIASIS
     Route: 065
  7. MYSER [Concomitant]
     Indication: PSORIASIS
     Route: 065
  8. ANTEBATE [Concomitant]
     Indication: PSORIASIS
     Route: 065

REACTIONS (6)
  - Infusion related reaction [Recovering/Resolving]
  - Malaise [Recovering/Resolving]
  - Headache [Recovering/Resolving]
  - Rash [Recovering/Resolving]
  - Psoriasis [Unknown]
  - Pruritus [Unknown]
